FAERS Safety Report 17744820 (Version 2)
Quarter: 2020Q2

REPORT INFORMATION
  Report Type: Spontaneous
  Country: US (occurrence: US)
  Receive Date: 20200505
  Receipt Date: 20200526
  Transmission Date: 20200714
  Serious: No
  Sender: FDA-Public Use
  Company Number: US-PFIZER INC-2020179063

PATIENT
  Age: 63 Year
  Sex: Female

DRUGS (1)
  1. PREGABALIN. [Suspect]
     Active Substance: PREGABALIN
     Dosage: 50 MG

REACTIONS (8)
  - Oral disorder [Unknown]
  - Chills [Unknown]
  - Rash [Unknown]
  - Heart rate increased [Unknown]
  - Hypertension [Unknown]
  - Urticaria [Unknown]
  - Burning sensation [Unknown]
  - Insomnia [Unknown]
